FAERS Safety Report 25280948 (Version 1)
Quarter: 2025Q2

REPORT INFORMATION
  Report Type: Spontaneous
  Country: US (occurrence: US)
  Receive Date: 20250508
  Receipt Date: 20250508
  Transmission Date: 20250716
  Serious: Yes (Other)
  Sender: COOPERSURGICAL
  Company Number: US-COOPERSURGICAL, INC.-2025CPS003489

PATIENT
  Age: 53 Year
  Sex: Female
  Weight: 58.503 kg

DRUGS (1)
  1. PARAGARD T 380A [Suspect]
     Active Substance: COPPER
     Indication: Contraception
     Route: 015
     Dates: start: 20140501

REACTIONS (8)
  - Surgery [Unknown]
  - Device breakage [Unknown]
  - Foreign body in reproductive tract [Unknown]
  - Complication of device removal [Unknown]
  - Menopause [Unknown]
  - Emotional disorder [Unknown]
  - Intentional device use issue [Unknown]
  - Off label use [Unknown]

NARRATIVE: CASE EVENT DATE: 20240605
